FAERS Safety Report 5773418-2 (Version None)
Quarter: 2008Q2

REPORT INFORMATION
  Report Type: 
  Country: None (occurrence: None)
  Receive Date: 20080616
  Receipt Date: 20080311
  Transmission Date: 20081010
  Serious: No
  Sender: FDA-Public Use
  Company Number: US-BAYER-200811040BCC

PATIENT
  Age: 79 Year
  Sex: Female
  Weight: 86 kg

DRUGS (16)
  1. ALEVE [Suspect]
     Indication: HEADACHE
     Dosage: AS USED: 220 MG  UNIT DOSE: 220 MG
     Route: 048
     Dates: start: 20080311
  2. SYNTHROID [Concomitant]
  3. CYTOMEL [Concomitant]
  4. XANAX [Concomitant]
  5. PLAVIX [Concomitant]
  6. LISINOPRIL [Concomitant]
  7. TOPROL-XL [Concomitant]
  8. LEXAPRO [Concomitant]
  9. PROTONIX [Concomitant]
  10. WELLBUTRIN [Concomitant]
  11. SIMVASTATIN [Concomitant]
  12. CENTRUM SILVER [Concomitant]
  13. EQUATE ASPIRIN [Concomitant]
  14. FISH OIL [Concomitant]
  15. RED I CAP [Concomitant]
  16. BALANCE B50 [Concomitant]

REACTIONS (1)
  - HEADACHE [None]
